FAERS Safety Report 9009346 (Version 1)
Quarter: 2013Q1

REPORT INFORMATION
  Report Type: Spontaneous
  Country: SI (occurrence: SI)
  Receive Date: 20130111
  Receipt Date: 20130111
  Transmission Date: 20140127
  Serious: Yes (Other)
  Sender: FDA-Public Use
  Company Number: SI-BRISTOL-MYERS SQUIBB COMPANY-17273798

PATIENT
  Sex: 0

DRUGS (4)
  1. ABILIFY TABS [Suspect]
     Route: 048
     Dates: start: 201208
  2. LEPONEX [Concomitant]
  3. LAMICTAL [Concomitant]
  4. QUILONORM [Concomitant]

REACTIONS (1)
  - Retinal tear [Not Recovered/Not Resolved]
